FAERS Safety Report 9000902 (Version 2)
Quarter: 2013Q1

REPORT INFORMATION
  Report Type: Spontaneous
  Country: GB (occurrence: None)
  Receive Date: 20121226
  Receipt Date: 20121227
  Transmission Date: 20140127
  Serious: Yes (Other)
  Sender: FDA-Public Use
  Company Number: AUR-APL-2012-05476

PATIENT
  Age: 44 Year
  Sex: Male
  Weight: 93 kg

DRUGS (10)
  1. MIRTAZAPINE (MIRTAZAPINE) [Suspect]
     Indication: DEPRESSION
     Route: 048
     Dates: start: 20121024, end: 20121121
  2. GTN (GLYCERYL TRINITRATE) [Concomitant]
  3. ISOSORBIDE MONONITRATE (ISOSORBIDE MONONITRATE) [Concomitant]
  4. LANSOPRAZOLE (LANSOPRAZOLE) [Concomitant]
  5. METOPROLOL (METOPROLOL) [Concomitant]
  6. PARACETAMOL (PARACETAMOL) [Concomitant]
  7. PERINDOPRIL (PERINDOPRIL) [Concomitant]
  8. PRAVASTATIN (PRAVASTATIN) [Concomitant]
  9. THIMAINE (THIAMINE) [Concomitant]
  10. WARFARIN (WARFARIN) [Concomitant]

REACTIONS (5)
  - Confusional state [None]
  - Gait disturbance [None]
  - Mobility decreased [None]
  - Cognitive disorder [None]
  - Condition aggravated [None]
